FAERS Safety Report 5919666-X (Version None)
Quarter: 2008Q3

REPORT INFORMATION
  Report Type: 
  Country: None (occurrence: None)
  Receive Date: 20080909
  Receipt Date: 20080630
  Transmission Date: 20090109
  Serious: Yes (Hospitalization)
  Sender: FDA-Public Use
  Company Number: 163-20785-08051716

PATIENT
  Age: 68 Year
  Sex: Female

DRUGS (16)
  1. THALOMID [Suspect]
     Indication: MYELODYSPLASTIC SYNDROME
     Dosage: 100 MG, 1 I N1 D, ORAL
     Route: 048
     Dates: start: 20080204, end: 20080523
  2. ACETAMINOPHEN [Concomitant]
  3. COREG [Concomitant]
  4. ENALAPRIL MALEATE [Concomitant]
  5. LASIX [Concomitant]
  6. POTASSIUM (POTASSIUM) [Concomitant]
  7. MULTIVITAMIN [Concomitant]
  8. LOVENOX [Concomitant]
  9. LIPITOR [Concomitant]
  10. ATIVAN [Concomitant]
  11. NITROGLYCERIN [Concomitant]
  12. LOMOTIL [Concomitant]
  13. VICODIN [Concomitant]
  14. PAROXETINE HCL [Concomitant]
  15. OXCARBAZEPINE [Concomitant]
  16. NASONEX (MOMETASONE FUROATE) (SUSPENSION) [Concomitant]

REACTIONS (6)
  - BALANCE DISORDER [None]
  - CARDIAC FAILURE CONGESTIVE [None]
  - DIZZINESS [None]
  - DYSKINESIA [None]
  - FALL [None]
  - FATIGUE [None]
